FAERS Safety Report 24105451 (Version 3)
Quarter: 2024Q3

REPORT INFORMATION
  Report Type: Spontaneous
  Country: CO (occurrence: CO)
  Receive Date: 20240717
  Receipt Date: 20240910
  Transmission Date: 20241017
  Serious: Yes (Other)
  Sender: LUNDBECK
  Company Number: CO-SA-SAC20240715000308

PATIENT

DRUGS (7)
  1. CLOBAZAM [Suspect]
     Active Substance: CLOBAZAM
     Indication: Epilepsy
     Dosage: 20 MG, Q8H
     Route: 048
     Dates: start: 202404, end: 2024
  2. CLOBAZAM [Suspect]
     Active Substance: CLOBAZAM
     Indication: Sebaceous naevus
     Dosage: 20 MG, QD
     Route: 048
     Dates: start: 2024, end: 2024
  3. CLOBAZAM [Suspect]
     Active Substance: CLOBAZAM
     Dosage: 20 MG, Q8H
     Route: 048
     Dates: start: 2024, end: 2024
  4. CLOBAZAM [Suspect]
     Active Substance: CLOBAZAM
     Dosage: 20 MG, Q12H
     Route: 048
     Dates: start: 202406
  5. LEVETIRACETAM [Concomitant]
     Active Substance: LEVETIRACETAM
     Indication: Epilepsy
     Dosage: 100 MG, Q8H
  6. AUBAGIO [Concomitant]
     Active Substance: TERIFLUNOMIDE
     Indication: Product used for unknown indication
     Dosage: 2 DF
     Dates: start: 20240711
  7. LEVETIRACETAM [Concomitant]
     Active Substance: LEVETIRACETAM
     Indication: Sebaceous naevus
     Dosage: 5 ML, Q8H
     Route: 048

REACTIONS (7)
  - Seizure [Recovered/Resolved]
  - Syncope [Recovered/Resolved]
  - Asthenia [Recovered/Resolved]
  - Headache [Recovered/Resolved]
  - Speech disorder [Recovered/Resolved]
  - Gait inability [Recovered/Resolved]
  - Intentional product misuse [Unknown]

NARRATIVE: CASE EVENT DATE: 20240501
